FAERS Safety Report 10283877 (Version 1)
Quarter: 2014Q3

REPORT INFORMATION
  Report Type: Spontaneous
  Country: GB (occurrence: None)
  Receive Date: 20140703
  Receipt Date: 20140703
  Transmission Date: 20150326
  Serious: Yes (Other)
  Sender: FDA-Public Use
  Company Number: FK201402543

PATIENT
  Sex: Female

DRUGS (14)
  1. SODIUM CHLORIDE (SODIUM CHLORIDE) [Suspect]
     Active Substance: SODIUM CHLORIDE
     Indication: PARENTERAL NUTRITION
     Dosage: 5 ML, 4 IN 1 WK, INTRAVENOUS DRIP
     Route: 041
  2. AMINOVEN [Suspect]
     Active Substance: AMINO ACIDS
     Indication: PARENTERAL NUTRITION
     Dosage: 184 ML, 4 IN 1 WK
     Route: 041
  3. SOLUVIT N [Suspect]
     Active Substance: VITAMINS
     Indication: PARENTERAL NUTRITION
     Dosage: 13.5 ML, 4 IN 1 WK
     Route: 041
  4. WATER FOR INJECTIONS [Suspect]
     Active Substance: WATER
     Indication: MEDICATION DILUTION
     Dosage: 718 ML, 4 IN 1 WEEK
     Route: 041
  5. SODIUM GLYCEROPHOSPHATE [Suspect]
     Active Substance: SODIUM GLYCEROPHOSPHATE
     Indication: PARENTERAL NUTRITION
     Dosage: 13.5 ML, 4 IN 1 WK
     Route: 041
  6. POTASSIUM CHLORIDE (POTASSIUM CHLORIDE) [Suspect]
     Active Substance: POTASSIUM CHLORIDE
     Indication: PARENTERAL NUTRITION
     Dosage: 19 ML, 4 IN 1 WK, INTRAVENOUS DRIP
     Route: 041
  7. GLUCOSE [Suspect]
     Active Substance: DEXTROSE
     Indication: PARENTERAL NUTRITION
     Dosage: 355 ML, 4 IN 1 WK
     Route: 041
  8. FERROUS CHLORIDE [Suspect]
     Active Substance: FERROUS CHLORIDE
     Indication: PARENTERAL NUTRITION
     Dosage: 1.6 ML, 4 IN 1 WK
     Route: 041
  9. MAGNESIUM SULFATE [Suspect]
     Active Substance: MAGNESIUM SULFATE
     Indication: PARENTERAL NUTRITION
     Dosage: 1.8 ML, 4 IN 1 WK
     Route: 041
  10. SMOFLIPID [Suspect]
     Active Substance: FISH OIL\OLIVEOIL\SOYBEAN OIL\TRIGLYCERIDES,UNSPECIFIED LENGTH
     Indication: PARENTERAL NUTRITION
     Route: 041
  11. PEDITRACE [Suspect]
     Active Substance: CUPRIC CHLORIDE\MANGANESE CHLORIDE\POTASSIUM IODIDE\SODIUM FLUORIDE\SODIUM SELENITE\ZINC CHLORIDE
     Indication: PARENTERAL NUTRITION
     Dosage: 15 ML, 4 IN 1 WK
     Route: 041
  12. CALCIUM CHLORIDE. [Suspect]
     Active Substance: CALCIUM CHLORIDE
     Indication: PARENTERAL NUTRITION
     Dosage: 5.9 ML, 4 IN 1 WK
     Route: 041
  13. RANITIDINE [Suspect]
     Active Substance: RANITIDINE\RANITIDINE HYDROCHLORIDE
     Indication: PARENTERAL NUTRITION
     Dosage: 2.4 ML, 4 IN 1 WK
     Route: 041
  14. ASCORBIC ACID. [Suspect]
     Active Substance: ASCORBIC ACID
     Indication: PARENTERAL NUTRITION
     Dosage: 4 IN 1 WK
     Route: 041

REACTIONS (2)
  - Suspected transmission of an infectious agent via product [None]
  - Bacillus bacteraemia [None]

NARRATIVE: CASE EVENT DATE: 20140515
